FAERS Safety Report 4445196-0 (Version None)
Quarter: 2004Q3

REPORT INFORMATION
  Report Type: 
  Country: None (occurrence: None)
  Receive Date: 20040903
  Receipt Date: 20040823
  Transmission Date: 20050211
  Serious: Yes (Death)
  Sender: FDA-Public Use
  Company Number: USA-2004-0016532

PATIENT
  Age: 42 Year
  Sex: Male
  Weight: 81.6 kg

DRUGS (2)
  1. MS CONTIN [Suspect]
  2. DIAZEPAM [Suspect]

REACTIONS (5)
  - ACCIDENT [None]
  - COMA [None]
  - MULTIPLE DRUG OVERDOSE ACCIDENTAL [None]
  - PNEUMONIA ASPIRATION [None]
  - RESPIRATORY RATE DECREASED [None]
